FAERS Safety Report 5687303-8 (Version None)
Quarter: 2008Q1

REPORT INFORMATION
  Report Type: 
  Country: None (occurrence: None)
  Receive Date: 20080328
  Receipt Date: 20070425
  Transmission Date: 20080703
  Serious: No
  Sender: FDA-Public Use
  Company Number: US-BAYER-US-2007-014754

PATIENT
  Age: 20 Year
  Sex: Female
  Weight: 86 kg

DRUGS (1)
  1. MIRENA [Suspect]
     Indication: CONTRACEPTION
     Route: 015
     Dates: start: 20050301

REACTIONS (7)
  - ANXIETY [None]
  - DEPRESSION [None]
  - FATIGUE [None]
  - FUNGAL INFECTION [None]
  - PHARYNGITIS [None]
  - VAGINAL DISCHARGE [None]
  - WEIGHT INCREASED [None]
